FAERS Safety Report 21494175 (Version 1)
Quarter: 2022Q4

REPORT INFORMATION
  Report Type: Spontaneous
  Country: GB (occurrence: GB)
  Receive Date: 20221021
  Receipt Date: 20221021
  Transmission Date: 20230112
  Serious: Yes (Other)
  Sender: FDA-Public Use
  Company Number: GB-MHRA-MED-202210071018027220-GRFPW

PATIENT
  Age: 38 Year
  Sex: Female

DRUGS (1)
  1. DULOXETINE HYDROCHLORIDE [Suspect]
     Active Substance: DULOXETINE HYDROCHLORIDE
     Indication: Vestibular migraine
     Dosage: UNK, UNKNOWN
     Route: 065
     Dates: start: 20220929

REACTIONS (7)
  - Pain in jaw [Recovered/Resolved]
  - Bruxism [Recovered/Resolved with Sequelae]
  - Chills [Recovered/Resolved]
  - Tension headache [Unknown]
  - Muscle tightness [Unknown]
  - Dysphagia [Unknown]
  - Off label use [Unknown]
